FAERS Safety Report 5946892-6 (Version None)
Quarter: 2008Q4

REPORT INFORMATION
  Report Type: 
  Country: None (occurrence: None)
  Receive Date: 20081107
  Receipt Date: 20081107
  Transmission Date: 20090506
  Serious: Yes (Other)
  Sender: FDA-Public Use
  Company Number: None

PATIENT
  Age: 36 Year
  Sex: Female
  Weight: 66.2252 kg

DRUGS (2)
  1. LYRICA [Suspect]
     Indication: FIBROMYALGIA
     Dosage: 50MG  2X DAILY PO
     Route: 048
     Dates: start: 20080815, end: 20080901
  2. LYRICA [Suspect]
     Indication: FIBROMYALGIA
     Dosage: 150 MG ONCE PO
     Route: 048
     Dates: start: 20081104, end: 20081104

REACTIONS (7)
  - ABDOMINAL PAIN UPPER [None]
  - ASTHENIA [None]
  - CONFUSIONAL STATE [None]
  - DISORIENTATION [None]
  - DIZZINESS [None]
  - DRUG INEFFECTIVE [None]
  - VOMITING PROJECTILE [None]
